FAERS Safety Report 8583820-1 (Version None)
Quarter: 2012Q3

REPORT INFORMATION
  Report Type: 
  Country: None (occurrence: None)
  Receive Date: 20120810
  Receipt Date: 20120731
  Transmission Date: 20120928
  Serious: Yes (Hospitalization, Other)
  Sender: FDA-Public Use
  Company Number: DE-009507513-2010SP060672

PATIENT

DRUGS (2)
  1. NOXAFIL [Suspect]
     Indication: CHRONIC GRANULOMATOUS DISEASE
     Dosage: 7.5 ML, BID
     Route: 048
     Dates: start: 20080323, end: 20101111
  2. SULFAMETHOXAZOLE AND TRIMETHOPRIM [Concomitant]
     Indication: CHRONIC GRANULOMATOUS DISEASE
     Dosage: UNK UNK, QD
     Dates: start: 19950101

REACTIONS (1)
  - CONGESTIVE CARDIOMYOPATHY [None]
